FAERS Safety Report 6525683-1 (Version None)
Quarter: 2009Q4

REPORT INFORMATION
  Report Type: 
  Country: None (occurrence: None)
  Receive Date: 20091222
  Receipt Date: 20091207
  Transmission Date: 20100525
  Serious: Yes (Hospitalization)
  Sender: FDA-Public Use
  Company Number: 2009003785

PATIENT
  Age: 69 Year

DRUGS (3)
  1. ERLOTINIB HYDROCHLORIDE [Suspect]
     Indication: NON-SMALL CELL LUNG CANCER
     Dosage: (150 MG, QD), ORAL
     Route: 048
     Dates: start: 20091008
  2. GEMCITABINE [Suspect]
     Indication: NON-SMALL CELL LUNG CANCER
     Dosage: (1200 MG/M2), INTRAVENOUS
     Route: 042
     Dates: start: 20091202
  3. CISPLATIN [Suspect]
     Indication: NON-SMALL CELL LUNG CANCER
     Dosage: (80 MG/M2, 1 PER 3 WEEKS), INTRAVENOUS
     Route: 042
     Dates: start: 20091202

REACTIONS (6)
  - CARDIAC DISORDER [None]
  - CHEST DISCOMFORT [None]
  - INFECTION [None]
  - MALIGNANT NEOPLASM PROGRESSION [None]
  - NON-SMALL CELL LUNG CANCER [None]
  - PULMONARY EMBOLISM [None]
